FAERS Safety Report 5504620-2 (Version None)
Quarter: 2007Q4

REPORT INFORMATION
  Report Type: 
  Country: None (occurrence: None)
  Receive Date: 20071101
  Receipt Date: 20071026
  Transmission Date: 20080405
  Serious: No
  Sender: FDA-Public Use
  Company Number: US-BOEHRINGER INGELHEIM PHARMACEUTICALS, INC.-2007-BP-23438BP

PATIENT
  Age: 81 Year
  Sex: Male

DRUGS (8)
  1. FLOMAX [Suspect]
     Indication: BENIGN PROSTATIC HYPERPLASIA
     Route: 048
     Dates: start: 20071021
  2. CARDIZEM [Concomitant]
     Indication: HYPERTENSION
  3. COZAAR [Concomitant]
     Indication: HYPERTENSION
  4. FOLTX [Concomitant]
  5. ZETIA [Concomitant]
     Indication: BLOOD CHOLESTEROL INCREASED
  6. PENTASA [Concomitant]
     Indication: CROHN'S DISEASE
  7. XALATAN [Concomitant]
     Indication: OCULAR HYPERTENSION
  8. ASPIRIN [Concomitant]

REACTIONS (2)
  - SYNCOPE [None]
  - VISION BLURRED [None]
